FAERS Safety Report 10081370 (Version 1)
Quarter: 2014Q2

REPORT INFORMATION
  Report Type: Spontaneous
  Country: US (occurrence: US)
  Receive Date: 20140416
  Receipt Date: 20140416
  Transmission Date: 20141212
  Serious: No
  Sender: FDA-Public Use
  Company Number: US-PFIZER INC-2014103973

PATIENT
  Age: 85 Year
  Sex: Female
  Weight: 89.8 kg

DRUGS (4)
  1. ADVIL [Suspect]
     Indication: ARTHRALGIA
     Dosage: UNK, AS NEEDED
  2. ADVIL [Suspect]
     Indication: BACK PAIN
  3. DIOVAN [Concomitant]
     Indication: HYPERTENSION
     Dosage: 20 MG, DAILY
  4. COREG [Concomitant]
     Indication: HYPERTENSION
     Dosage: 20 MG, DAILY

REACTIONS (2)
  - Abdominal discomfort [Unknown]
  - Abdominal pain upper [Unknown]
